FAERS Safety Report 8555307-3 (Version None)
Quarter: 2012Q3

REPORT INFORMATION
  Report Type: 
  Country: None (occurrence: None)
  Receive Date: 20120731
  Receipt Date: 20120717
  Transmission Date: 20120928
  Serious: No
  Sender: FDA-Public Use
  Company Number: US-009507513-1207USA007055

PATIENT

DRUGS (2)
  1. ZETIA [Suspect]
     Route: 048
  2. ZOCOR [Concomitant]
     Route: 048

REACTIONS (3)
  - MUSCLE SPASMS [None]
  - ARTHRALGIA [None]
  - MUSCLE TIGHTNESS [None]
